FAERS Safety Report 6139835-6 (Version None)
Quarter: 2009Q2

REPORT INFORMATION
  Report Type: 
  Country: None (occurrence: None)
  Receive Date: 20090401
  Receipt Date: 20090326
  Transmission Date: 20091009
  Serious: Yes (Death, Other)
  Sender: FDA-Public Use
  Company Number: NZ-AVENTIS-200911513GDDC

PATIENT
  Age: 72 Year
  Sex: Female

DRUGS (4)
  1. ARAVA [Suspect]
     Indication: RHEUMATOID ARTHRITIS
     Dates: start: 20070702, end: 20080201
  2. METHOTREXATE [Concomitant]
     Dosage: DOSE: UNK
  3. PARACETAMOL [Concomitant]
     Dosage: DOSE: UNK
  4. SALAZOPYRIN [Concomitant]
     Dosage: DOSE: UNK
     Dates: start: 20050101

REACTIONS (3)
  - DEATH [None]
  - LIVER FUNCTION TEST ABNORMAL [None]
  - PNEUMONIA [None]
